FAERS Safety Report 20088214 (Version 2)
Quarter: 2021Q4

REPORT INFORMATION
  Report Type: Report from Study
  Country: US (occurrence: US)
  Receive Date: 20211118
  Receipt Date: 20211122
  Transmission Date: 20220303
  Serious: Yes (Other)
  Sender: FDA-Public Use
  Company Number: US-ABBVIE-21K-163-4160045-00

PATIENT
  Age: 42 Year
  Sex: Female

DRUGS (3)
  1. HUMIRA [Suspect]
     Active Substance: ADALIMUMAB
     Indication: Hidradenitis
     Dosage: CITRATE FREE
     Route: 058
  2. MODERNA COVID-19 VACCINE [Suspect]
     Active Substance: CX-024414
     Indication: COVID-19 immunisation
     Route: 030
     Dates: start: 20210402, end: 20210402
  3. MODERNA COVID-19 VACCINE [Suspect]
     Active Substance: CX-024414
     Route: 030
     Dates: start: 20210502, end: 20210502

REACTIONS (12)
  - Loss of consciousness [Unknown]
  - Abdominal pain [Unknown]
  - Hepatic steatosis [Unknown]
  - Alanine aminotransferase increased [Unknown]
  - Fatigue [Recovered/Resolved]
  - Injection site pain [Unknown]
  - Contusion [Unknown]
  - Hidradenitis [Unknown]
  - Weight decreased [Unknown]
  - Increased tendency to bruise [Unknown]
  - Decreased appetite [Unknown]
  - Fatigue [Unknown]

NARRATIVE: CASE EVENT DATE: 20201101
